FAERS Safety Report 7639799-X (Version None)
Quarter: 2011Q3

REPORT INFORMATION
  Report Type: 
  Country: None (occurrence: None)
  Receive Date: 20110727
  Receipt Date: 20110721
  Transmission Date: 20111222
  Serious: Yes (Hospitalization)
  Sender: FDA-Public Use
  Company Number: CHPA2011US09814

PATIENT
  Age: 85 Year
  Sex: Female

DRUGS (1)
  1. PREVACID 24 HR [Suspect]
     Indication: HIATUS HERNIA
     Dosage: 15 MG, QD
     Route: 048

REACTIONS (3)
  - CEREBROVASCULAR ACCIDENT [None]
  - OFF LABEL USE [None]
  - INCORRECT DRUG ADMINISTRATION DURATION [None]
